FAERS Safety Report 5318453-3 (Version None)
Quarter: 2007Q2

REPORT INFORMATION
  Report Type: 
  Country: None (occurrence: None)
  Receive Date: 20070430
  Receipt Date: 20070413
  Transmission Date: 20071010
  Serious: Yes (Hospitalization)
  Sender: FDA-Public Use
  Company Number: 2007EU000840

PATIENT
  Age: 2 Year
  Sex: Female

DRUGS (1)
  1. FK506 - OINTMENT (TACROLIMUS OINTMENT) [Suspect]
     Indication: ECZEMA
     Dosage: PRN, TOPICAL
     Route: 061

REACTIONS (2)
  - PNEUMONIA PARAINFLUENZAE VIRAL [None]
  - VARICELLA [None]
